FAERS Safety Report 13167426 (Version 1)
Quarter: 2017Q1

REPORT INFORMATION
  Report Type: Spontaneous
  Country: US (occurrence: US)
  Receive Date: 20170131
  Receipt Date: 20170131
  Transmission Date: 20170428
  Serious: No
  Sender: FDA-Public Use
  Company Number: US-PFIZER INC-2017034683

PATIENT
  Sex: Female

DRUGS (1)
  1. CHANTIX [Suspect]
     Active Substance: VARENICLINE TARTRATE
     Indication: SMOKING CESSATION THERAPY
     Dosage: UNK
     Dates: start: 20170117

REACTIONS (5)
  - Agitation [Unknown]
  - Drug ineffective [Unknown]
  - Feeling abnormal [Unknown]
  - Drug dose omission [Unknown]
  - Nausea [Unknown]

NARRATIVE: CASE EVENT DATE: 201701
